FAERS Safety Report 14666397 (Version 1)
Quarter: 2018Q1

REPORT INFORMATION
  Report Type: Spontaneous
  Country: US (occurrence: US)
  Receive Date: 20180320
  Receipt Date: 20180320
  Transmission Date: 20180509
  Serious: Yes (Hospitalization)
  Sender: FDA-Public Use
  Company Number: None

PATIENT
  Age: 64 Year
  Sex: Female
  Weight: 64.4 kg

DRUGS (1)
  1. ISOVUE [Suspect]
     Active Substance: IOPAMIDOL
     Indication: GLIOBLASTOMA
     Route: 042
     Dates: start: 20180210, end: 20180315

REACTIONS (2)
  - Dysphagia [None]
  - Pruritus [None]

NARRATIVE: CASE EVENT DATE: 20180315
